FAERS Safety Report 5380572-3 (Version None)
Quarter: 2007Q3

REPORT INFORMATION
  Report Type: 
  Country: None (occurrence: None)
  Receive Date: 20070706
  Receipt Date: 20070627
  Transmission Date: 20080115
  Serious: Yes (Hospitalization)
  Sender: FDA-Public Use
  Company Number: US-BRACCO-BDI-009795

PATIENT
  Sex: Female

DRUGS (1)
  1. ISOVUE-128 [Suspect]
     Route: 042
     Dates: start: 20070627, end: 20070627

REACTIONS (3)
  - BLISTER [None]
  - EXTRAVASATION [None]
  - PAIN [None]
